FAERS Safety Report 22343669 (Version 1)
Quarter: 2023Q2

REPORT INFORMATION
  Report Type: Spontaneous
  Country: JP (occurrence: JP)
  Receive Date: 20230519
  Receipt Date: 20230519
  Transmission Date: 20230722
  Serious: Yes (Other)
  Sender: FDA-Public Use
  Company Number: JP-SUN PHARMACEUTICAL INDUSTRIES LTD-2023RR-388720

PATIENT
  Age: 71 Year
  Sex: Male

DRUGS (1)
  1. SUNITINIB [Suspect]
     Active Substance: SUNITINIB
     Indication: Pancreatic carcinoma
     Dosage: UNK
     Route: 065

REACTIONS (3)
  - Nephrotic syndrome [Unknown]
  - Acute kidney injury [Unknown]
  - Thrombotic microangiopathy [Unknown]
